FAERS Safety Report 7637958-3 (Version None)
Quarter: 2011Q3

REPORT INFORMATION
  Report Type: 
  Country: None (occurrence: None)
  Receive Date: 20110727
  Receipt Date: 20110719
  Transmission Date: 20111222
  Serious: Yes (Hospitalization, Other)
  Sender: FDA-Public Use
  Company Number: US-BAYER-2011-035435

PATIENT
  Age: 40 Year
  Sex: Female
  Weight: 98 kg

DRUGS (14)
  1. YAZ [Suspect]
     Indication: PRODUCT USED FOR UNKNOWN INDICATION
     Dosage: UNK
     Dates: start: 20070201, end: 20090627
  2. ALLEGRA [Concomitant]
  3. CITALOPRAM HYDROBROMIDE [Concomitant]
  4. ATIVAN [Concomitant]
  5. LORAZEPAM [Concomitant]
  6. FERROUS SULFATE TAB [Concomitant]
  7. DEPO-MEDROL [Concomitant]
     Indication: ARTHRALGIA
     Dosage: UNK
     Dates: start: 20090708
  8. XYLOCAINE [Concomitant]
     Indication: ARTHRALGIA
     Dosage: UNK
     Dates: start: 20090708
  9. CELEXA [Concomitant]
  10. YASMIN [Suspect]
     Indication: PRODUCT USED FOR UNKNOWN INDICATION
     Dosage: UNK
     Dates: start: 20050801, end: 20070123
  11. HYDROCODONE BITARTRATE AND ACETAMINOPHEN [Concomitant]
  12. NASONEX [Concomitant]
  13. FEXOFENADINE [Concomitant]
  14. SUPARTZ [Concomitant]
     Indication: ARTHRALGIA

REACTIONS (2)
  - INJURY [None]
  - PULMONARY EMBOLISM [None]
